FAERS Safety Report 24995013 (Version 5)
Quarter: 2025Q3

REPORT INFORMATION
  Report Type: Spontaneous
  Country: JP (occurrence: JP)
  Receive Date: 20250221
  Receipt Date: 20250801
  Transmission Date: 20251021
  Serious: Yes (Hospitalization)
  Sender: EISAI
  Company Number: JP-Eisai-202415089_LEN-RCC_P_1

PATIENT
  Age: 78 Year
  Sex: Male

DRUGS (7)
  1. LENVIMA [Suspect]
     Active Substance: LENVATINIB
     Indication: Renal cell carcinoma
     Dates: start: 20250115, end: 202501
  2. LENVIMA [Suspect]
     Active Substance: LENVATINIB
     Dates: start: 202501, end: 202502
  3. LENVIMA [Suspect]
     Active Substance: LENVATINIB
  4. LENVIMA [Suspect]
     Active Substance: LENVATINIB
     Dosage: 5 DAYS ON, 2 DAYS OFF.
     Dates: start: 2025, end: 2025
  5. LENVIMA [Suspect]
     Active Substance: LENVATINIB
     Dosage: 5 DAYS ON, 2 DAYS OFF.
     Dates: start: 2025, end: 2025
  6. LENVIMA [Suspect]
     Active Substance: LENVATINIB
     Dosage: 5 DAYS ON, 2 DAYS OFF.
     Dates: start: 2025
  7. KEYTRUDA [Suspect]
     Active Substance: PEMBROLIZUMAB
     Indication: Renal cell carcinoma
     Dates: start: 20250115, end: 202502

REACTIONS (4)
  - Asthenia [Recovered/Resolved]
  - Tremor [Recovered/Resolved]
  - Decreased appetite [Unknown]
  - Hypertension [Recovered/Resolved]

NARRATIVE: CASE EVENT DATE: 20250101
